FAERS Safety Report 25073755 (Version 2)
Quarter: 2025Q1

REPORT INFORMATION
  Report Type: Spontaneous
  Country: DE (occurrence: DE)
  Receive Date: 20250313
  Receipt Date: 20250325
  Transmission Date: 20250408
  Serious: Yes (Other)
  Sender: TEVA
  Company Number: DE-TEVA-VS-3307071

PATIENT
  Age: 76 Year
  Sex: Female
  Weight: 100 kg

DRUGS (11)
  1. VENLAFAXINE [Suspect]
     Active Substance: VENLAFAXINE HYDROCHLORIDE
     Indication: Depression
     Route: 065
  2. VENLAFAXINE [Suspect]
     Active Substance: VENLAFAXINE HYDROCHLORIDE
     Indication: Depression
     Dosage: DOSE TITRATED
     Route: 065
  3. PREGABALIN [Concomitant]
     Active Substance: PREGABALIN
     Indication: Depression
     Dosage: AT NIGHT
     Route: 065
  4. LAMOTRIGINE [Suspect]
     Active Substance: LAMOTRIGINE
     Indication: Depression
     Route: 065
  5. LAMOTRIGINE [Suspect]
     Active Substance: LAMOTRIGINE
     Indication: Depression
     Route: 065
  6. LITHIUM [Suspect]
     Active Substance: LITHIUM
     Indication: Depression
     Route: 065
  7. MIRTAZAPINE [Suspect]
     Active Substance: MIRTAZAPINE
     Indication: Depression
     Route: 065
  8. MIRTAZAPINE [Suspect]
     Active Substance: MIRTAZAPINE
     Indication: Depression
     Route: 065
  9. CARIPRAZINE [Concomitant]
     Active Substance: CARIPRAZINE
     Indication: Depression
     Route: 065
  10. MILNACIPRAN [Suspect]
     Active Substance: MILNACIPRAN
     Indication: Depression
     Route: 065
  11. MILNACIPRAN [Suspect]
     Active Substance: MILNACIPRAN
     Indication: Depression
     Route: 065

REACTIONS (4)
  - Chronic kidney disease [Unknown]
  - Drug ineffective [Unknown]
  - Altered state of consciousness [Unknown]
  - Fall [Unknown]
